FAERS Safety Report 25249424 (Version 1)
Quarter: 2025Q2

REPORT INFORMATION
  Report Type: Spontaneous
  Country: ES (occurrence: ES)
  Receive Date: 20250429
  Receipt Date: 20250429
  Transmission Date: 20250717
  Serious: Yes (Death, Life-Threatening, Other)
  Sender: AMGEN
  Company Number: ES-AMGEN-ESPSP2025079973

PATIENT
  Age: 4 Year
  Sex: Male

DRUGS (16)
  1. FILGRASTIM [Suspect]
     Active Substance: FILGRASTIM
     Indication: Neutropenia
     Dosage: 10 MICROGRAM/KILOGRAM, QD (FOR 10 DAYS )
     Route: 065
  2. RITUXIMAB [Concomitant]
     Active Substance: RITUXIMAB
  3. METHOTREXATE [Concomitant]
     Active Substance: METHOTREXATE
  4. MICAFUNGIN [Concomitant]
     Active Substance: MICAFUNGIN SODIUM
     Indication: Antifungal prophylaxis
     Dosage: 1 MILLIGRAM/KILOGRAM, QD,
     Route: 040
  5. MICAFUNGIN [Concomitant]
     Active Substance: MICAFUNGIN SODIUM
     Dosage: 2 MILLIGRAM/KILOGRAM, QD,
     Route: 040
  6. CYCLOPHOSPHAMIDE [Concomitant]
     Active Substance: CYCLOPHOSPHAMIDE
  7. VINCRISTINE [Concomitant]
     Active Substance: VINCRISTINE
  8. PREDNISONE [Concomitant]
     Active Substance: PREDNISONE
  9. DOXORUBICIN [Concomitant]
     Active Substance: DOXORUBICIN
  10. SULFAMETHOXAZOLE\TRIMETHOPRIM [Concomitant]
     Active Substance: SULFAMETHOXAZOLE\TRIMETHOPRIM
  11. PIPERACILLIN SODIUM\TAZOBACTAM SODIUM [Concomitant]
     Active Substance: PIPERACILLIN SODIUM\TAZOBACTAM SODIUM
     Dosage: 300 MILLIGRAM/KILOGRAM, QD
  12. VANCOMYCIN [Concomitant]
     Active Substance: VANCOMYCIN
     Dosage: 40 MILLIGRAM/KILOGRAM, QD
  13. MEROPENEM [Concomitant]
     Active Substance: MEROPENEM
     Dosage: 60 MILLIGRAM/KILOGRAM, QD, 120 MG/KG/DAY IN AN EXTENDED 3-HOUR INFUSION
  14. AMIKACIN [Concomitant]
     Active Substance: AMIKACIN
     Dosage: 18 MILLIGRAM/KILOGRAM, QD
  15. METRONIDAZOLE [Concomitant]
     Active Substance: METRONIDAZOLE
     Dosage: 40 MILLIGRAM/KILOGRAM, QD
  16. AMPHOTERICIN B [Concomitant]
     Active Substance: AMPHOTERICIN B
     Dosage: 5 MILLIGRAM/KILOGRAM, QD

REACTIONS (9)
  - Death [Fatal]
  - Multiple organ dysfunction syndrome [Unknown]
  - General physical health deterioration [Unknown]
  - Septic shock [Unknown]
  - Pneumonia [Unknown]
  - Ascites [Unknown]
  - Systemic mycosis [Unknown]
  - Diarrhoea [Unknown]
  - Drug ineffective [Unknown]
